FAERS Safety Report 7638266-7 (Version None)
Quarter: 2011Q3

REPORT INFORMATION
  Report Type: 
  Country: None (occurrence: None)
  Receive Date: 20110727
  Receipt Date: 20110718
  Transmission Date: 20111222
  Serious: Yes (Hospitalization)
  Sender: FDA-Public Use
  Company Number: GB-BRISTOL-MYERS SQUIBB COMPANY-15908346

PATIENT
  Age: 66 Year
  Sex: Male

DRUGS (1)
  1. WARFARIN SODIUM [Suspect]
     Indication: ATRIAL FIBRILLATION

REACTIONS (6)
  - UPPER AIRWAY OBSTRUCTION [None]
  - SPONTANEOUS HAEMATOMA [None]
  - LOCAL SWELLING [None]
  - INTERNATIONAL NORMALISED RATIO INCREASED [None]
  - LARYNGEAL HAEMATOMA [None]
  - HEART RATE IRREGULAR [None]
